FAERS Safety Report 4839656-8 (Version None)
Quarter: 2005Q4

REPORT INFORMATION
  Report Type: 
  Country: None (occurrence: None)
  Receive Date: 20051129
  Receipt Date: 20050511
  Transmission Date: 20060501
  Serious: No
  Sender: FDA-Public Use
  Company Number: US-GLAXOSMITHKLINE-A0558122A

PATIENT
  Age: 34 Year
  Sex: Female

DRUGS (2)
  1. WELLBUTRIN SR [Suspect]
     Indication: DEPRESSION
     Route: 048
     Dates: start: 20020401, end: 20020401
  2. SYNTHROID [Concomitant]

REACTIONS (5)
  - ENERGY INCREASED [None]
  - INSOMNIA [None]
  - PRURITUS [None]
  - RASH [None]
  - URTICARIA [None]
